FAERS Safety Report 8017783-4 (Version None)
Quarter: 2012Q1

REPORT INFORMATION
  Report Type: 
  Country: None (occurrence: None)
  Receive Date: 20120103
  Receipt Date: 20111221
  Transmission Date: 20120608
  Serious: Yes (Other)
  Sender: FDA-Public Use
  Company Number: US-JNJFOC-20111209581

PATIENT
  Sex: Female
  Weight: 62.6 kg

DRUGS (3)
  1. NAPROSYN [Concomitant]
     Indication: PAIN
     Route: 048
     Dates: start: 20110101
  2. REMICADE [Suspect]
     Indication: ARTHRITIS
     Route: 042
     Dates: start: 20110801
  3. ACETAMINOPHEN [Concomitant]
     Indication: PAIN
     Route: 048
     Dates: start: 20110101

REACTIONS (3)
  - THERAPEUTIC RESPONSE DECREASED [None]
  - ARTHRITIS [None]
  - RENAL PAIN [None]
